FAERS Safety Report 10007393 (Version 1)
Quarter: 2014Q1

REPORT INFORMATION
  Report Type: Spontaneous
  Country: RU (occurrence: RU)
  Receive Date: 20140313
  Receipt Date: 20140313
  Transmission Date: 20141002
  Serious: Yes (Hospitalization)
  Sender: FDA-Public Use
  Company Number: RU-VIIV HEALTHCARE LIMITED-B0968972A

PATIENT
  Sex: Female

DRUGS (4)
  1. KIVEXA [Suspect]
     Indication: HIV INFECTION
     Dosage: 1TAB PER DAY
     Route: 065
     Dates: start: 201306
  2. KALETRA [Suspect]
     Indication: HIV INFECTION
     Route: 065
  3. VITAMINS [Concomitant]
  4. MAGNESIUM [Concomitant]

REACTIONS (8)
  - Blood glucose increased [Unknown]
  - Blood creatinine decreased [Unknown]
  - Renal pain [Recovered/Resolved]
  - Nausea [Unknown]
  - Conversion disorder [Unknown]
  - Protein total decreased [Unknown]
  - Insomnia [Recovering/Resolving]
  - Exposure during pregnancy [Unknown]
